FAERS Safety Report 25757798 (Version 2)
Quarter: 2025Q3

REPORT INFORMATION
  Report Type: Spontaneous
  Country: CA (occurrence: CA)
  Receive Date: 20250903
  Receipt Date: 20250929
  Transmission Date: 20251021
  Serious: Yes (Other)
  Sender: PFIZER
  Company Number: CA-PFIZER INC-202500172969

PATIENT
  Age: 18 Year
  Sex: Female
  Weight: 110 kg

DRUGS (3)
  1. IXIFI [Suspect]
     Active Substance: INFLIXIMAB-QBTX
     Indication: Crohn^s disease
     Route: 042
     Dates: start: 20250708
  2. IXIFI [Suspect]
     Active Substance: INFLIXIMAB-QBTX
     Route: 042
     Dates: start: 20250829
  3. ENTOCORT [Concomitant]
     Active Substance: BUDESONIDE

REACTIONS (5)
  - Suicidal ideation [Recovering/Resolving]
  - Apathy [Recovering/Resolving]
  - Condition aggravated [Recovering/Resolving]
  - Arthralgia [Not Recovered/Not Resolved]
  - Dermatitis psoriasiform [Unknown]

NARRATIVE: CASE EVENT DATE: 20250101
